FAERS Safety Report 17913684 (Version 1)
Quarter: 2020Q2

REPORT INFORMATION
  Report Type: Spontaneous
  Country: CA (occurrence: CA)
  Receive Date: 20200618
  Receipt Date: 20200618
  Transmission Date: 20200714
  Serious: Yes (Other)
  Sender: FDA-Public Use
  Company Number: US-ALLERGAN-2022824US

PATIENT
  Sex: Male
  Weight: 80 kg

DRUGS (2)
  1. SALOFALK (MESALAZINE) [Suspect]
     Active Substance: MESALAMINE
     Indication: COLITIS ULCERATIVE
     Route: 048
  2. SOLU-MEDROL [Suspect]
     Active Substance: METHYLPREDNISOLONE SODIUM SUCCINATE
     Indication: COLITIS ULCERATIVE
     Dosage: 20 MG, TID
     Route: 042

REACTIONS (2)
  - Haematochezia [Unknown]
  - Drug ineffective [Unknown]
